FAERS Safety Report 11912625 (Version 1)
Quarter: 2016Q1

REPORT INFORMATION
  Report Type: Spontaneous
  Country: US (occurrence: None)
  Receive Date: 20160112
  Receipt Date: 20160112
  Transmission Date: 20160526
  Serious: Yes (Death)
  Sender: FDA-Public Use
  Company Number: None

PATIENT
  Age: 60 Year
  Sex: Male
  Weight: 90.72 kg

DRUGS (7)
  1. VITAMIN B12 [Concomitant]
     Active Substance: CYANOCOBALAMIN
  2. AMBIEN [Concomitant]
     Active Substance: ZOLPIDEM TARTRATE
  3. TRAMADOL. [Concomitant]
     Active Substance: TRAMADOL
  4. BENADRYL [Concomitant]
     Active Substance: DIPHENHYDRAMINE HYDROCHLORIDE
  5. GABAPENTIN 300MG [Suspect]
     Active Substance: GABAPENTIN
     Indication: SCIATICA
     Dosage: 1 TAB QHS/BEDTIME ORAL
     Route: 048
     Dates: start: 20140401, end: 20150401
  6. LIPITOR [Concomitant]
     Active Substance: ATORVASTATIN CALCIUM
  7. ANTIDEPRESSANT [Concomitant]
     Active Substance: UNSPECIFIED INGREDIENT

REACTIONS (7)
  - Cognitive disorder [None]
  - Therapy change [None]
  - Violence-related symptom [None]
  - Tremor [None]
  - Feeling abnormal [None]
  - Depression [None]
  - Completed suicide [None]

NARRATIVE: CASE EVENT DATE: 20150401
